FAERS Safety Report 8343292-9 (Version None)
Quarter: 2012Q2

REPORT INFORMATION
  Report Type: 
  Country: None (occurrence: None)
  Receive Date: 20120503
  Receipt Date: 20120421
  Transmission Date: 20120825
  Serious: Yes (Other)
  Sender: FDA-Public Use
  Company Number: 2012SA028463

PATIENT
  Age: 72 Year
  Sex: Male

DRUGS (1)
  1. CAPZASIN/ UNKNOWN / UNKNOWN [Suspect]
     Indication: ARTHROPATHY
     Dosage: TOPICAL
     Route: 061
     Dates: start: 20120315

REACTIONS (2)
  - BURNING SENSATION [None]
  - BURNS SECOND DEGREE [None]
